FAERS Safety Report 9318350 (Version 1)
Quarter: 2013Q2

REPORT INFORMATION
  Report Type: Spontaneous
  Country: US (occurrence: US)
  Receive Date: 20130530
  Receipt Date: 20130530
  Transmission Date: 20140414
  Serious: No
  Sender: FDA-Public Use
  Company Number: US-GLAXOSMITHKLINE-A1012451A

PATIENT
  Age: 36 Year
  Sex: Female

DRUGS (6)
  1. VENTOLIN [Suspect]
     Indication: ASTHMA
     Dosage: 4PUFF AS REQUIRED
     Route: 055
     Dates: start: 201208
  2. ADVAIR [Concomitant]
  3. SINGULAIR [Concomitant]
  4. HYDROCHLOROTHIAZIDE [Concomitant]
  5. WARFARIN [Concomitant]
  6. AFRIN [Concomitant]

REACTIONS (3)
  - Drug ineffective [Recovering/Resolving]
  - Dyspnoea [Unknown]
  - Overdose [Unknown]
